FAERS Safety Report 6186289-X (Version None)
Quarter: 2009Q2

REPORT INFORMATION
  Report Type: 
  Country: None (occurrence: None)
  Receive Date: 20090511
  Receipt Date: 20090504
  Transmission Date: 20091009
  Serious: Yes (Death)
  Sender: FDA-Public Use
  Company Number: US-SANOFI-SYNTHELABO-A03200901456

PATIENT
  Sex: Male

DRUGS (6)
  1. PLAVIX [Suspect]
     Indication: ANGIOPLASTY
     Route: 048
     Dates: start: 20040401
  2. PLAVIX [Suspect]
     Indication: STENT PLACEMENT
     Route: 048
     Dates: start: 20040401
  3. BACTRIM [Concomitant]
     Indication: IMMUNOSUPPRESSION
     Route: 065
  4. FOSAMAX [Concomitant]
     Indication: OSTEOPOROSIS
     Route: 065
  5. DEXAMETHASONE 4MG TAB [Concomitant]
     Indication: DRUG USE FOR UNKNOWN INDICATION
     Route: 065
  6. ACYCLOVIR [Concomitant]
     Indication: IMMUNOSUPPRESSION
     Route: 065

REACTIONS (7)
  - ASPERGILLOSIS [None]
  - CHILLS [None]
  - DISSEMINATED INTRAVASCULAR COAGULATION [None]
  - HAEMORRHAGE INTRACRANIAL [None]
  - MONONEUROPATHY MULTIPLEX [None]
  - PYREXIA [None]
  - WEIGHT DECREASED [None]
